FAERS Safety Report 5866905-X (Version None)
Quarter: 2008Q3

REPORT INFORMATION
  Report Type: 
  Country: None (occurrence: None)
  Receive Date: 20080827
  Receipt Date: 20080820
  Transmission Date: 20090109
  Serious: Yes (Other)
  Sender: FDA-Public Use
  Company Number: 2008JP003202

PATIENT
  Age: 58 Year
  Sex: Female
  Weight: 39 kg

DRUGS (7)
  1. PROGRAF [Suspect]
     Indication: RHEUMATOID ARTHRITIS
     Dosage: 1 MG, UID/QD, ORAL
     Route: 048
     Dates: start: 20070914, end: 20080628
  2. PREDNISOLONE [Concomitant]
  3. OMEPRAL PER ORAL NOS [Concomitant]
  4. AMLODIN (AMLODIPINE BESILATE) PER ORAL NOS [Concomitant]
  5. MUCOSTA (REBAMIPIDE) FORMULATION UNKNOWN [Concomitant]
  6. DIOVAN (VALSARTAN) FORMULATION UNKNOWN [Concomitant]
  7. MAGMITT (MAGNESIUM OXIDE) FORMULATION UNKNOWN [Concomitant]

REACTIONS (2)
  - LYMPHADENOPATHY [None]
  - TONGUE NEOPLASM MALIGNANT STAGE UNSPECIFIED [None]
